FAERS Safety Report 9388200 (Version 1)
Quarter: 2013Q3

REPORT INFORMATION
  Report Type: Spontaneous
  Country: US (occurrence: US)
  Receive Date: 20130708
  Receipt Date: 20130708
  Transmission Date: 20140515
  Serious: Yes (Hospitalization)
  Sender: FDA-Public Use
  Company Number: US-BRISTOL-MYERS SQUIBB COMPANY-19072396

PATIENT
  Age: 61 Year
  Sex: Female
  Weight: 95.69 kg

DRUGS (10)
  1. ABILIFY [Suspect]
     Indication: MANIA
     Dosage: SHE ADVISED TO TAKE ABLIFY 10MG.SHE HAS GIVEN 15MG AND IS CUTTING THEM IN HALF FOR A 7.5MG DOSE
  2. ABILIFY [Suspect]
     Indication: BIPOLAR DISORDER
     Dosage: SHE ADVISED TO TAKE ABLIFY 10MG.SHE HAS GIVEN 15MG AND IS CUTTING THEM IN HALF FOR A 7.5MG DOSE
  3. BENADRYL [Concomitant]
  4. BUDESONIDE [Concomitant]
  5. HYDRALAZINE [Concomitant]
  6. KLONOPIN [Concomitant]
  7. LEXAPRO [Concomitant]
  8. LISINOPRIL [Concomitant]
  9. NYSTATIN POWDER [Concomitant]
  10. BROVANA [Concomitant]

REACTIONS (3)
  - Mania [Unknown]
  - Depression [Unknown]
  - Suicidal ideation [Unknown]
